FAERS Safety Report 11513804 (Version 4)
Quarter: 2015Q4

REPORT INFORMATION
  Report Type: Spontaneous
  Country: US (occurrence: US)
  Receive Date: 20150916
  Receipt Date: 20151023
  Transmission Date: 20160304
  Serious: No
  Sender: FDA-Public Use
  Company Number: US-PFIZER INC-2015298733

PATIENT
  Age: 68 Year
  Sex: Male

DRUGS (2)
  1. DILANTIN [Suspect]
     Active Substance: PHENYTOIN
     Indication: SEIZURE
     Dosage: 200 MG, 2X/DAY
     Route: 048
     Dates: start: 1965
  2. PHENOBARBITAL. [Concomitant]
     Active Substance: PHENOBARBITAL
     Indication: SEIZURE
     Dosage: 65 MG, 2X/DAY
     Dates: start: 1965

REACTIONS (5)
  - Gingival swelling [Not Recovered/Not Resolved]
  - Jaw disorder [Not Recovered/Not Resolved]
  - Tooth disorder [Not Recovered/Not Resolved]
  - Tooth loss [Not Recovered/Not Resolved]
  - Gingival erythema [Not Recovered/Not Resolved]
